FAERS Safety Report 8987199 (Version 1)
Quarter: 2012Q4

REPORT INFORMATION
  Report Type: 
  Country: US (occurrence: US)
  Receive Date: 20121226
  Receipt Date: 20121226
  Transmission Date: 20130627
  Serious: No
  Sender: FDA-Public Use
  Company Number: US-009507513-1212USA008422

PATIENT
  Age: 83 Year
  Sex: Male

DRUGS (1)
  1. AZASITE [Suspect]
     Indication: EYE IRRITATION
     Dosage: UNK
     Route: 047
     Dates: start: 20121218

REACTIONS (2)
  - Vision blurred [Unknown]
  - Off label use [Unknown]
